FAERS Safety Report 8560577-1 (Version None)
Quarter: 2012Q3

REPORT INFORMATION
  Report Type: 
  Country: None (occurrence: None)
  Receive Date: 20120723
  Receipt Date: 20120706
  Transmission Date: 20120928
  Serious: Yes (Death, Other)
  Sender: FDA-Public Use
  Company Number: FK201201916

PATIENT
  Age: 47 Year
  Sex: Female
  Weight: 95 kg

DRUGS (3)
  1. PACLITAXEL [Suspect]
     Indication: BREAST CANCER METASTATIC
  2. CAPECITABINE [Concomitant]
  3. AVASTIN [Suspect]
     Indication: BREAST CANCER METASTATIC
     Dosage: 1500 MBQ, 1 IN 21 D, INTRAVENOUS (NOT OTHERWISE SPECIFIED)
     Route: 042
     Dates: start: 20111117, end: 20111229

REACTIONS (5)
  - PULMONARY EMBOLISM [None]
  - IMMOBILE [None]
  - METASTASES TO CENTRAL NERVOUS SYSTEM [None]
  - NEUROPATHY PERIPHERAL [None]
  - SUDDEN DEATH [None]
